FAERS Safety Report 8119837-0 (Version None)
Quarter: 2012Q1

REPORT INFORMATION
  Report Type: 
  Country: None (occurrence: None)
  Receive Date: 20120206
  Receipt Date: 20120206
  Transmission Date: 20120608
  Serious: No
  Sender: FDA-Public Use
  Company Number: None

PATIENT
  Sex: Female
  Weight: 65.318 kg

DRUGS (2)
  1. ALPHAGAN [Suspect]
     Indication: GLAUCOMA
     Dosage: DROPS TWICE DAILY
     Dates: start: 20061001, end: 20061201
  2. ALPHAGAN [Suspect]
     Indication: GLAUCOMA
     Dosage: DROPS TWICE DAILY
     Dates: start: 20120101

REACTIONS (3)
  - EYE PRURITUS [None]
  - INSOMNIA [None]
  - DRY MOUTH [None]
